FAERS Safety Report 9200281 (Version 2)
Quarter: 2013Q2

REPORT INFORMATION
  Report Type: Report from Study
  Country: BR (occurrence: BR)
  Receive Date: 20130329
  Receipt Date: 20130605
  Transmission Date: 20140414
  Serious: Yes (Death, Hospitalization)
  Sender: FDA-Public Use
  Company Number: PHHY2013BR030464

PATIENT
  Age: 74 Year
  Sex: Female

DRUGS (3)
  1. DIOVAN [Suspect]
     Indication: CARDIAC DISORDER
     Dosage: 160 MG, QD
     Route: 048
  2. DIOVAN [Suspect]
     Indication: OFF LABEL USE
  3. DIOVAN [Suspect]
     Indication: ARRHYTHMIA

REACTIONS (6)
  - Cardiac arrest [Fatal]
  - Dyspnoea [Recovered/Resolved]
  - Oedema [Recovering/Resolving]
  - Swelling [Recovered/Resolved]
  - Gastritis [Not Recovered/Not Resolved]
  - Malaise [Not Recovered/Not Resolved]
